FAERS Safety Report 17910996 (Version 1)
Quarter: 2020Q2

REPORT INFORMATION
  Report Type: Spontaneous
  Country: FR (occurrence: FR)
  Receive Date: 20200618
  Receipt Date: 20200618
  Transmission Date: 20200714
  Serious: Yes (Other)
  Sender: FDA-Public Use
  Company Number: FR-SUN PHARMACEUTICAL INDUSTRIES LTD-2020RR-250602

PATIENT
  Age: 53 Year
  Sex: Female
  Weight: 52 kg

DRUGS (6)
  1. PARACETAMOL [Suspect]
     Active Substance: ACETAMINOPHEN
     Indication: HEADACHE
     Dosage: 4 GRAM, DAILY
     Route: 048
     Dates: start: 20200423
  2. ORAMORPH [Suspect]
     Active Substance: MORPHINE SULFATE
     Indication: HEADACHE
     Dosage: 60 MILLIGRAM, DAILY
     Route: 048
     Dates: start: 20200423
  3. IOMERON [Suspect]
     Active Substance: IOMEPROL
     Indication: IMAGING PROCEDURE
     Dosage: IN TOTAL
     Route: 042
     Dates: start: 20200423, end: 20200426
  4. PROFENID (KETOPROFEN) [Suspect]
     Active Substance: KETOPROFEN
     Indication: HEADACHE
     Dosage: 200 MILLIGRAM, DAILY
     Route: 042
     Dates: start: 20200425, end: 20200427
  5. KEPPRA [Suspect]
     Active Substance: LEVETIRACETAM
     Indication: GENERALISED TONIC-CLONIC SEIZURE
     Dosage: 1000 MILLIGRAM, DAILY
     Route: 048
     Dates: start: 20200423
  6. NIMODIPINE. [Suspect]
     Active Substance: NIMODIPINE
     Indication: SUBARACHNOID HAEMORRHAGE
     Dosage: 120 MILLIGRAM, DAILY
     Route: 048
     Dates: start: 20200418

REACTIONS (6)
  - Urticaria [Not Recovered/Not Resolved]
  - Cholestasis [Not Recovered/Not Resolved]
  - Eosinophil count increased [Not Recovered/Not Resolved]
  - Hyperleukocytosis [Not Recovered/Not Resolved]
  - Hepatocellular injury [Not Recovered/Not Resolved]
  - Neutrophil count increased [Not Recovered/Not Resolved]

NARRATIVE: CASE EVENT DATE: 20200427
